FAERS Safety Report 5341682-X (Version None)
Quarter: 2007Q2

REPORT INFORMATION
  Report Type: 
  Country: None (occurrence: None)
  Receive Date: 20070530
  Receipt Date: 20070517
  Transmission Date: 20071010
  Serious: Yes (Life-Threatening, Hospitalization, Other)
  Sender: FDA-Public Use
  Company Number: 156506ISR

PATIENT
  Age: 90 Year
  Sex: Female

DRUGS (1)
  1. DOXYCYCLINE [Suspect]
     Dosage: 100 MG, ORAL
     Route: 048
     Dates: start: 20070309, end: 20070311

REACTIONS (3)
  - AGRANULOCYTOSIS [None]
  - ANAEMIA [None]
  - DIARRHOEA [None]
